FAERS Safety Report 24335230 (Version 3)
Quarter: 2024Q3

REPORT INFORMATION
  Report Type: Spontaneous
  Country: IE (occurrence: IE)
  Receive Date: 20240918
  Receipt Date: 20240923
  Transmission Date: 20241016
  Serious: Yes (Hospitalization, Other)
  Sender: SANDOZ
  Company Number: IE-NOVARTISGX-PHHY2018IE086011

PATIENT
  Age: 87 Year
  Sex: Male

DRUGS (10)
  1. ASPIRIN [Suspect]
     Active Substance: ASPIRIN
     Indication: Coronary artery stenosis
     Dosage: 75 MG, QD
     Route: 048
  2. CIPROFLOXACIN HYDROCHLORIDE [Suspect]
     Active Substance: CIPROFLOXACIN HYDROCHLORIDE
     Dosage: 1000 MG, QD (500 MG, BID)
     Route: 048
     Dates: start: 2013, end: 2013
  3. CIPROFLOXACIN HYDROCHLORIDE [Suspect]
     Active Substance: CIPROFLOXACIN HYDROCHLORIDE
     Dosage: 500 MG, QD  (250 MG, BID)
     Route: 048
     Dates: start: 2013, end: 2013
  4. CIPROFLOXACIN HYDROCHLORIDE [Suspect]
     Active Substance: CIPROFLOXACIN HYDROCHLORIDE
     Indication: Post procedural infection
     Dosage: 800 MG, QD (400 MG, BID)
     Route: 042
     Dates: start: 20120703, end: 20120709
  5. ELIQUIS [Suspect]
     Active Substance: APIXABAN
     Indication: Thrombosis prophylaxis
     Dosage: 5 MG, QD (2.5 MG, BID)
     Route: 048
     Dates: start: 20130624
  6. ELIQUIS [Suspect]
     Active Substance: APIXABAN
     Indication: Deep vein thrombosis
  7. ELIQUIS [Suspect]
     Active Substance: APIXABAN
     Indication: Thrombosis prophylaxis
  8. ASPIRIN [Concomitant]
     Active Substance: ASPIRIN
     Indication: Product used for unknown indication
     Dosage: 75 MG, QD
     Route: 065
  9. ENOXAPARIN [Concomitant]
     Active Substance: ENOXAPARIN
     Indication: Product used for unknown indication
     Dosage: UNK([HEPARIN-FRACTION])
     Route: 065
  10. HEPARIN [Concomitant]
     Active Substance: HEPARIN SODIUM
     Indication: Product used for unknown indication
     Dosage: UNK
     Route: 058

REACTIONS (5)
  - Wound infection [Recovered/Resolved]
  - Angina pectoris [Unknown]
  - Post procedural haemorrhage [Unknown]
  - Renal failure [Unknown]
  - Tendon rupture [Unknown]

NARRATIVE: CASE EVENT DATE: 20130101
